FAERS Safety Report 13073864 (Version 1)
Quarter: 2016Q4

REPORT INFORMATION
  Report Type: Spontaneous
  Country: CA (occurrence: CA)
  Receive Date: 20161229
  Receipt Date: 20161229
  Transmission Date: 20170207
  Serious: Yes (Other)
  Sender: FDA-Public Use
  Company Number: CA-BION-005838

PATIENT
  Age: 63 Year
  Sex: Female

DRUGS (2)
  1. LIDOCAINE HYDROCHLORIDE UNKNOWN PRODUCT [Suspect]
     Active Substance: LIDOCAINE HYDROCHLORIDE
     Indication: LOCAL ANAESTHESIA
     Dosage: 2 TO 3 ML OF 1% LIDOCAINE (XYLOCAINE)
     Route: 058
  2. EPINEPHRINE. [Suspect]
     Active Substance: EPINEPHRINE
     Indication: LOCAL ANAESTHESIA
     Dosage: 1:100,000 EPINEPHRINE
     Route: 058

REACTIONS (1)
  - Extremity necrosis [Recovering/Resolving]
